FAERS Safety Report 8943285 (Version 2)
Quarter: 2013Q1

REPORT INFORMATION
  Report Type: Report from Study
  Country: JP (occurrence: JP)
  Receive Date: 20121204
  Receipt Date: 20130116
  Transmission Date: 20140127
  Serious: Yes (Hospitalization, Other)
  Sender: FDA-Public Use
  Company Number: JP-009507513-1211JPN012576

PATIENT
  Age: 48 Year
  Sex: Male
  Weight: 69 kg

DRUGS (24)
  1. PEGINTRON [Suspect]
     Indication: CHRONIC HEPATITIS C
     Dosage: 1.45 MICROGRAM PER KILOGRAM, QW
     Route: 058
     Dates: start: 20120907
  2. REBETOL [Suspect]
     Indication: CHRONIC HEPATITIS C
     Dosage: 800 MG, QD
     Route: 048
     Dates: start: 20120907, end: 20120927
  3. REBETOL [Suspect]
     Dosage: 600 MG, QD
     Route: 048
     Dates: start: 20120928, end: 20121108
  4. REBETOL [Suspect]
     Dosage: 400 MG, QD
     Route: 048
     Dates: start: 20121109, end: 20121123
  5. TELAVIC [Suspect]
     Indication: CHRONIC HEPATITIS C
     Dosage: 1500 MG, QD
     Route: 048
     Dates: start: 20120907, end: 20121123
  6. ZYLORIC [Concomitant]
     Indication: PROPHYLAXIS
     Dosage: 200 MG, QD
     Route: 048
     Dates: start: 20120907, end: 20121108
  7. ZYLORIC [Concomitant]
     Dosage: 100 MG, QD
     Route: 048
     Dates: start: 20121109
  8. LOXOPROFEN [Concomitant]
     Indication: PROPHYLAXIS
     Dosage: 60 MG, QD
     Route: 048
     Dates: start: 20120907, end: 20121004
  9. LOXOPROFEN [Concomitant]
     Dosage: 60 MG, PRN
     Route: 048
     Dates: start: 20121129
  10. GASTER D [Concomitant]
     Dosage: 40 MG, QD
     Route: 048
     Dates: start: 20120914, end: 20121004
  11. MAALOX (ALUMINUM HYDROXIDE (+) MAGNESIUM HYDROXIDE (+) SIMETHICONE) [Concomitant]
     Dosage: 3.6 G, QD
     Route: 048
     Dates: start: 20120928, end: 20121123
  12. LASIX (FUROSEMIDE) [Concomitant]
     Dosage: 40 MG, QD
     Route: 048
     Dates: start: 20121003, end: 20121018
  13. ALDACTONE INJECTION [Concomitant]
     Dosage: 25 MG, QD
     Route: 048
     Dates: start: 20121003, end: 20121018
  14. PARIET [Concomitant]
     Dosage: 10 MG, QD
     Route: 048
     Dates: start: 20121005, end: 20121123
  15. PREDONINE [Concomitant]
     Dosage: 5 MG, QD
     Route: 048
     Dates: start: 20121019
  16. MUCOSTA [Concomitant]
     Dosage: 300 MG, QD
     Route: 048
     Dates: end: 20121004
  17. AMARYL [Concomitant]
     Indication: DIABETES MELLITUS
     Dosage: 0.5 MG, QD
     Route: 048
  18. METGLUCO [Concomitant]
     Indication: DIABETES MELLITUS
     Dosage: 1000 MG, QD
     Route: 048
  19. JANUVIA TABLETS 50MG [Concomitant]
     Indication: DIABETES MELLITUS
     Dosage: 50 MG, QD
     Route: 048
  20. [THERAPY UNSPECIFIED] [Concomitant]
     Dosage: UNK, PRN
     Route: 051
  21. ALLELOCK [Concomitant]
     Dosage: 10 MG, QD
     Route: 048
     Dates: start: 20121109, end: 20121129
  22. POLARAMINE (DEXCHLORPHENIRAMINE MALEATE) [Concomitant]
     Dosage: 4 MG, QD
     Route: 048
     Dates: start: 20121116, end: 20121129
  23. OMEPRAL [Concomitant]
     Dosage: 20 MG, QD
     Route: 042
     Dates: start: 20121123, end: 20121127
  24. ATARAX P [Concomitant]
     Dosage: 25 MG/ 1 ML, PRN
     Route: 042
     Dates: start: 20121123, end: 20121126

REACTIONS (4)
  - Erythema multiforme [Recovering/Resolving]
  - Haemoglobin decreased [Not Recovered/Not Resolved]
  - Upper gastrointestinal haemorrhage [Recovered/Resolved]
  - Gastrointestinal haemorrhage [Recovered/Resolved]
